FAERS Safety Report 15206668 (Version 3)
Quarter: 2018Q3

REPORT INFORMATION
  Report Type: Report from Study
  Country: None (occurrence: NL)
  Receive Date: 20180727
  Receipt Date: 20180914
  Transmission Date: 20181010
  Serious: Yes (Hospitalization, Other)
  Sender: FDA-Public Use
  Company Number: NL-ABBVIE-18S-114-2432217-00

PATIENT
  Sex: Female
  Weight: 42.5 kg

DRUGS (1)
  1. DUODOPA [Suspect]
     Active Substance: CARBIDOPA\LEVODOPA
     Indication: PARKINSON^S DISEASE
     Dosage: MD: 3.3, CD: 4.4, ED: 4.0, CND: 2.9, END: 3.0?CONTINUOUS DOSE IS INCREASED WITH 0.1 TO 4.4
     Route: 050
     Dates: start: 20130313

REACTIONS (5)
  - Gastrointestinal disorder [Recovering/Resolving]
  - Rectal perforation [Unknown]
  - Peritoneal abscess [Unknown]
  - Tissue infiltration [Unknown]
  - Parkinson^s disease [Not Recovered/Not Resolved]
